FAERS Safety Report 19271482 (Version 1)
Quarter: 2021Q2

REPORT INFORMATION
  Report Type: Report from Study
  Country: FR (occurrence: FR)
  Receive Date: 20210518
  Receipt Date: 20210518
  Transmission Date: 20210717
  Serious: Yes (Hospitalization, Other)
  Sender: FDA-Public Use
  Company Number: FR-ROCHE-2716425

PATIENT
  Age: 62 Year
  Sex: Male

DRUGS (13)
  1. SERESTA [Concomitant]
     Active Substance: OXAZEPAM
  2. METFORMINE [Concomitant]
     Active Substance: METFORMIN HYDROCHLORIDE
  3. TOCILIZUMAB. [Suspect]
     Active Substance: TOCILIZUMAB
     Dosage: 20 MG/ML CONCENTRATE FOR SOLUTION FOR INFUSION; CONCENTRATE FOR SOLUTION FOR INFUSION
     Route: 042
  4. AMLOR [Concomitant]
     Active Substance: AMLODIPINE BESYLATE
  5. LOVENOX [Concomitant]
     Active Substance: ENOXAPARIN SODIUM
  6. SERESTA [Concomitant]
     Active Substance: OXAZEPAM
  7. INIPOMP [Concomitant]
     Active Substance: PANTOPRAZOLE SODIUM
  8. TOCILIZUMAB. [Suspect]
     Active Substance: TOCILIZUMAB
     Route: 042
     Dates: start: 20201017
  9. DEXAMETHASONE. [Suspect]
     Active Substance: DEXAMETHASONE
     Indication: COVID-19
     Dosage: 4 MG/ML SOLUTION FOR INJECTION
     Route: 042
     Dates: start: 20201015, end: 20201019
  10. AMLODIPINE [Concomitant]
     Active Substance: AMLODIPINE BESYLATE
  11. DEXAMETHASONE. [Suspect]
     Active Substance: DEXAMETHASONE
     Route: 042
     Dates: start: 20201020, end: 20201024
  12. TOCILIZUMAB. [Suspect]
     Active Substance: TOCILIZUMAB
     Indication: COVID-19
     Route: 042
     Dates: start: 20201015
  13. ESCITALOPRAM [Concomitant]
     Active Substance: ESCITALOPRAM OXALATE

REACTIONS (3)
  - Ataxia [Recovered/Resolved with Sequelae]
  - Presyncope [Recovered/Resolved]
  - Cerebellar ischaemia [Recovered/Resolved with Sequelae]

NARRATIVE: CASE EVENT DATE: 20201022
